FAERS Safety Report 7261926-7 (Version None)
Quarter: 2011Q1

REPORT INFORMATION
  Report Type: 
  Country: None (occurrence: None)
  Receive Date: 20110130
  Receipt Date: 20101213
  Transmission Date: 20110831
  Serious: No
  Sender: FDA-Public Use
  Company Number: US-ABBOTT-10P-163-0691268-00

PATIENT
  Age: 65 Year
  Sex: Male

DRUGS (8)
  1. VITAMIN D [Concomitant]
     Indication: PRODUCT USED FOR UNKNOWN INDICATION
     Dosage: DAILY
  2. HALOG [Concomitant]
     Indication: PSORIASIS
  3. OTC ALLERGY MEDICATIONS [Concomitant]
     Indication: HYPERSENSITIVITY
  4. HUMIRA [Suspect]
     Indication: PSORIASIS
  5. TRANDOLAPRIL [Concomitant]
     Indication: HYPERTENSION
  6. FLOMAX [Concomitant]
     Indication: POLLAKIURIA
  7. LORATADINE [Concomitant]
     Indication: HYPERSENSITIVITY
  8. FOLIC ACID [Concomitant]
     Indication: PRODUCT USED FOR UNKNOWN INDICATION
     Dosage: DAILY

REACTIONS (2)
  - BLEEDING TIME PROLONGED [None]
  - BLOOD URINE PRESENT [None]
